FAERS Safety Report 8616736 (Version 2)
Quarter: 2012Q4

REPORT INFORMATION
  Report Type: 
  Country: US (occurrence: US)
  Receive Date: 20120615
  Receipt Date: 20120823
  Transmission Date: 20130627
  Serious: No
  Sender: FDA-Public Use
  Company Number: US-ELI_LILLY_AND_COMPANY-US201206001342

PATIENT
  Age: 50 None
  Sex: Male

DRUGS (9)
  1. CYMBALTA [Suspect]
     Indication: DEPRESSION
     Dosage: 60 mg, bid
     Route: 048
     Dates: start: 20110606
  2. GABAPENTIN [Concomitant]
     Dosage: 800 mg, qid
     Route: 048
  3. METHADONE [Concomitant]
     Dosage: 20 mg, tid
     Route: 048
  4. SOMA [Concomitant]
     Dosage: UNK, bid
  5. SOMA [Concomitant]
     Dosage: 350 mg, qd
     Route: 048
  6. MOBIC [Concomitant]
     Dosage: 15 mg, qd
     Route: 048
  7. ASPIRIN [Concomitant]
  8. FISH OIL [Concomitant]
  9. TRILIPIX [Concomitant]

REACTIONS (11)
  - Blood testosterone decreased [Unknown]
  - Blood glucose increased [Unknown]
  - Depression [Unknown]
  - Mobility decreased [Unknown]
  - Pain [Unknown]
  - Skin lesion [Recovered/Resolved]
  - Drug dose omission [Unknown]
  - Mood altered [Unknown]
  - Personality change [Unknown]
  - Aggression [Unknown]
  - Arthritis [Not Recovered/Not Resolved]
